FAERS Safety Report 7091479-8 (Version None)
Quarter: 2010Q4

REPORT INFORMATION
  Report Type: 
  Country: None (occurrence: None)
  Receive Date: 20101105
  Receipt Date: 20101105
  Transmission Date: 20110411
  Serious: Yes (Hospitalization, Other)
  Sender: FDA-Public Use
  Company Number: None

PATIENT
  Age: 2 Month
  Sex: Female
  Weight: 6.804 kg

DRUGS (1)
  1. HYLANDS'S HOMEOPATHIC 100% NATURAL HYLANDS [Suspect]
     Indication: TEETHING
     Dosage: 2-3 EVERY 4 HOURS SL
     Route: 060
     Dates: start: 20090401, end: 20101101

REACTIONS (4)
  - APNOEA [None]
  - CONVULSION [None]
  - CYANOSIS [None]
  - HEART RATE INCREASED [None]
